FAERS Safety Report 9005981 (Version 1)
Quarter: 2013Q1

REPORT INFORMATION
  Report Type: Spontaneous
  Country: US (occurrence: US)
  Receive Date: 20130109
  Receipt Date: 20130109
  Transmission Date: 20140127
  Serious: No
  Sender: FDA-Public Use
  Company Number: US-009507513-1301USA002899

PATIENT
  Age: 22 Year
  Sex: Female
  Weight: 79.37 kg

DRUGS (2)
  1. IMPLANON [Suspect]
     Indication: CONTRACEPTION
     Dosage: UNK
     Dates: start: 20121128, end: 20130104
  2. VITAMINS (UNSPECIFIED) [Concomitant]

REACTIONS (5)
  - Implant site reaction [Recovering/Resolving]
  - Implant site infection [Recovering/Resolving]
  - Implant site pruritus [Recovering/Resolving]
  - Implant site erythema [Recovering/Resolving]
  - Implant site pustules [Recovering/Resolving]
